FAERS Safety Report 19637804 (Version 2)
Quarter: 2022Q1

REPORT INFORMATION
  Report Type: Spontaneous
  Country: IN (occurrence: IN)
  Receive Date: 20210729
  Receipt Date: 20220325
  Transmission Date: 20220423
  Serious: Yes (Other)
  Sender: FDA-Public Use
  Company Number: IN-PFIZER INC-2021902836

PATIENT
  Age: 60 Year
  Sex: Male

DRUGS (3)
  1. SUTENT [Suspect]
     Active Substance: SUNITINIB MALATE
     Indication: Metastatic renal cell carcinoma
     Dosage: 37.5 MG, 1X/DAY
     Route: 048
     Dates: start: 20210615, end: 20210702
  2. ZOLEDRONIC ACID [Concomitant]
     Active Substance: ZOLEDRONIC ACID
  3. SHELCAL [CALCIUM CARBONATE;COLECALCIFEROL] [Concomitant]

REACTIONS (5)
  - Second primary malignancy [Unknown]
  - Papillary thyroid cancer [Unknown]
  - Hepatic enzyme abnormal [Unknown]
  - Tri-iodothyronine increased [Unknown]
  - Neoplasm progression [Unknown]
